FAERS Safety Report 5310945-6 (Version None)
Quarter: 2007Q2

REPORT INFORMATION
  Report Type: 
  Country: None (occurrence: None)
  Receive Date: 20070426
  Receipt Date: 20070426
  Transmission Date: 20071010
  Serious: Yes (Life-Threatening, Hospitalization)
  Sender: FDA-Public Use
  Company Number: None

PATIENT
  Sex: Male
  Weight: 98.4306 kg

DRUGS (2)
  1. VESICARE [Suspect]
     Indication: BLADDER SPASM
     Dosage: 5 MG 1 A DAY PO
     Route: 048
     Dates: start: 20070330, end: 20070413
  2. PROTONIX [Concomitant]

REACTIONS (1)
  - PULMONARY EMBOLISM [None]
